FAERS Safety Report 25134288 (Version 1)
Quarter: 2025Q1

REPORT INFORMATION
  Report Type: Spontaneous
  Country: KE (occurrence: KE)
  Receive Date: 20250328
  Receipt Date: 20250328
  Transmission Date: 20250409
  Serious: Yes (Other)
  Sender: RANBAXY
  Company Number: KE-SUN PHARMACEUTICAL INDUSTRIES LTD-2025RR-500989

PATIENT
  Age: 19 Month
  Sex: Male

DRUGS (28)
  1. MEROPENEM [Suspect]
     Active Substance: MEROPENEM
     Indication: Vomiting
     Route: 065
  2. MEROPENEM [Suspect]
     Active Substance: MEROPENEM
     Indication: Tachypnoea
  3. MEROPENEM [Suspect]
     Active Substance: MEROPENEM
     Indication: Peripheral swelling
  4. VANCOMYCIN [Suspect]
     Active Substance: VANCOMYCIN
     Indication: Vomiting
     Route: 065
  5. VANCOMYCIN [Suspect]
     Active Substance: VANCOMYCIN
     Indication: Tachypnoea
  6. VANCOMYCIN [Suspect]
     Active Substance: VANCOMYCIN
     Indication: Peripheral swelling
  7. AZITHROMYCIN [Suspect]
     Active Substance: AZITHROMYCIN
     Indication: Pyrexia
     Route: 040
  8. AZITHROMYCIN [Suspect]
     Active Substance: AZITHROMYCIN
     Indication: Vomiting
  9. AZITHROMYCIN [Suspect]
     Active Substance: AZITHROMYCIN
     Indication: Diarrhoea
  10. AZITHROMYCIN [Suspect]
     Active Substance: AZITHROMYCIN
     Indication: Feeding disorder
  11. AZITHROMYCIN [Suspect]
     Active Substance: AZITHROMYCIN
     Indication: Irritability
  12. CEFTRIAXONE [Suspect]
     Active Substance: CEFTRIAXONE
     Indication: Pyrexia
     Route: 040
  13. CEFTRIAXONE [Suspect]
     Active Substance: CEFTRIAXONE
     Indication: Vomiting
  14. CEFTRIAXONE [Suspect]
     Active Substance: CEFTRIAXONE
     Indication: Diarrhoea
  15. CEFTRIAXONE [Suspect]
     Active Substance: CEFTRIAXONE
     Indication: Feeding disorder
  16. CEFTRIAXONE [Suspect]
     Active Substance: CEFTRIAXONE
     Indication: Irritability
  17. NYSTATIN [Suspect]
     Active Substance: NYSTATIN
     Indication: Vomiting
     Route: 040
  18. NYSTATIN [Suspect]
     Active Substance: NYSTATIN
     Indication: Pyrexia
  19. NYSTATIN [Suspect]
     Active Substance: NYSTATIN
     Indication: Diarrhoea
  20. NYSTATIN [Suspect]
     Active Substance: NYSTATIN
     Indication: Feeding disorder
  21. NYSTATIN [Suspect]
     Active Substance: NYSTATIN
     Indication: Irritability
  22. ACETAMINOPHEN [Suspect]
     Active Substance: ACETAMINOPHEN
     Indication: Pyrexia
     Route: 040
  23. IBUPROFEN [Suspect]
     Active Substance: IBUPROFEN
     Indication: Pyrexia
     Route: 040
  24. HUMAN IMMUNOGLOBULIN G [Suspect]
     Active Substance: HUMAN IMMUNOGLOBULIN G
     Indication: Pyrexia
     Route: 040
  25. IMMUNE GLOBULIN NOS [Suspect]
     Active Substance: IMMUNE GLOBULIN NOS
     Indication: Tachypnoea
  26. IMMUNE GLOBULIN NOS [Suspect]
     Active Substance: IMMUNE GLOBULIN NOS
     Indication: Peripheral swelling
  27. ASPIRIN [Suspect]
     Active Substance: ASPIRIN
     Indication: Pyrexia
     Route: 040
  28. FLUCONAZOLE [Suspect]
     Active Substance: FLUCONAZOLE
     Indication: Product used for unknown indication
     Route: 065

REACTIONS (1)
  - Condition aggravated [Recovering/Resolving]
